FAERS Safety Report 19046244 (Version 4)
Quarter: 2021Q2

REPORT INFORMATION
  Report Type: Spontaneous
  Country: TR (occurrence: TR)
  Receive Date: 20210322
  Receipt Date: 20210510
  Transmission Date: 20210717
  Serious: Yes (Other)
  Sender: FDA-Public Use
  Company Number: TR-GILEAD-2021-0522012

PATIENT
  Age: 40 Year
  Sex: Male

DRUGS (9)
  1. BIKTARVY [Suspect]
     Active Substance: BICTEGRAVIR SODIUM\EMTRICITABINE\TENOFOVIR ALAFENAMIDE FUMARATE
     Indication: HIV INFECTION
     Dosage: 1 DOSAGE FORM
     Route: 065
     Dates: start: 20200801
  2. IRON [Concomitant]
     Active Substance: IRON
  3. DEXAMETHASONE. [Concomitant]
     Active Substance: DEXAMETHASONE
  4. TMP?SMX [Concomitant]
     Active Substance: SULFAMETHOXAZOLE\TRIMETHOPRIM
  5. FLUCONAZOLE. [Concomitant]
     Active Substance: FLUCONAZOLE
  6. VITAMIN B12 [Concomitant]
     Active Substance: CYANOCOBALAMIN
  7. RIVAROXABAN [Concomitant]
     Active Substance: RIVAROXABAN
  8. IVIGLOB EX [Concomitant]
     Active Substance: HUMAN IMMUNOGLOBULIN G
  9. VITAMIN D [VITAMIN D NOS] [Concomitant]
     Active Substance: VITAMIN D NOS

REACTIONS (1)
  - Myocardial infarction [Unknown]

NARRATIVE: CASE EVENT DATE: 20201002
